FAERS Safety Report 9760250 (Version 2)
Quarter: 2015Q3

REPORT INFORMATION
  Report Type: Spontaneous
  Country: US (occurrence: US)
  Receive Date: 20131216
  Receipt Date: 20150806
  Transmission Date: 20151125
  Serious: No
  Sender: FDA-Public Use
  Company Number: US-GILEAD-2010-0028925

PATIENT
  Age: 70 Year
  Sex: Female
  Weight: 69.13 kg

DRUGS (10)
  1. LETAIRIS [Suspect]
     Active Substance: AMBRISENTAN
     Indication: PULMONARY ARTERIAL HYPERTENSION
     Route: 048
     Dates: start: 20090505
  2. KLOR-CON [Concomitant]
     Active Substance: POTASSIUM CHLORIDE
  3. DIOVAN [Concomitant]
     Active Substance: VALSARTAN
  4. LEVOTHYROXINE. [Concomitant]
     Active Substance: LEVOTHYROXINE
  5. PREDNISONE. [Concomitant]
     Active Substance: PREDNISONE
  6. FUROSEMIDE. [Concomitant]
     Active Substance: FUROSEMIDE
  7. TYLENOL ARTHRITIS PAIN [Concomitant]
     Active Substance: ACETAMINOPHEN
  8. FLUDROCORTISONE [Concomitant]
     Active Substance: FLUDROCORTISONE
  9. ADCIRCA [Concomitant]
     Active Substance: TADALAFIL
  10. HYDROCORTISONE. [Concomitant]
     Active Substance: HYDROCORTISONE

REACTIONS (2)
  - Pain in extremity [Unknown]
  - Peripheral swelling [Unknown]
